FAERS Safety Report 17190898 (Version 1)
Quarter: 2019Q4

REPORT INFORMATION
  Report Type: Spontaneous
  Country: US (occurrence: US)
  Receive Date: 20191223
  Receipt Date: 20191223
  Transmission Date: 20200122
  Serious: Yes (Other)
  Sender: FDA-Public Use
  Company Number: US-PFIZER INC-2019408260

PATIENT
  Age: 58 Year
  Sex: Male

DRUGS (4)
  1. CAMPTOSAR [Suspect]
     Active Substance: IRINOTECAN HYDROCHLORIDE
     Dosage: 15 ML, UNK
  2. CAMPTOSAR [Suspect]
     Active Substance: IRINOTECAN HYDROCHLORIDE
     Indication: PANCREATIC CARCINOMA
     Dosage: 340 MG, EVERY 14 DAYS FOR 12 CYCLES
  3. CAMPTOSAR [Suspect]
     Active Substance: IRINOTECAN HYDROCHLORIDE
     Dosage: 340 MG, UNK (2 QTY - 2 ML + 2 QTY - 15 ML)
  4. CAMPTOSAR [Suspect]
     Active Substance: IRINOTECAN HYDROCHLORIDE
     Dosage: 400 MG, CYCLIC (EVERY 14 DAYS)

REACTIONS (3)
  - Off label use [Unknown]
  - Liver abscess [Unknown]
  - Product use in unapproved indication [Unknown]
